FAERS Safety Report 18385845 (Version 1)
Quarter: 2020Q4

REPORT INFORMATION
  Report Type: Report from Study
  Country: US (occurrence: US)
  Receive Date: 20201015
  Receipt Date: 20201015
  Transmission Date: 20210114
  Serious: Yes (Death)
  Sender: FDA-Public Use
  Company Number: US-PFIZER INC-2020390477

PATIENT
  Sex: Male

DRUGS (3)
  1. CARBOPLATIN. [Suspect]
     Active Substance: CARBOPLATIN
     Indication: GLIOBLASTOMA MULTIFORME
     Dosage: 500 MG/M2, DAILY (ON DAYS -8, -7, AND -6)
  2. THIOTEPA. [Suspect]
     Active Substance: THIOTEPA
     Indication: GLIOBLASTOMA MULTIFORME
     Dosage: 300 MG/M2, DAILY (ON DAYS -5, -4, AND -3)
  3. ETOPOSIDE. [Suspect]
     Active Substance: ETOPOSIDE
     Indication: GLIOBLASTOMA MULTIFORME
     Dosage: 250 MG/M2, DAILY (ON DAYS -5, -4, AND -3)

REACTIONS (2)
  - Capillary leak syndrome [Fatal]
  - Multiple organ dysfunction syndrome [Fatal]
